FAERS Safety Report 7898308-0 (Version None)
Quarter: 2011Q4

REPORT INFORMATION
  Report Type: 
  Country: None (occurrence: None)
  Receive Date: 20111107
  Receipt Date: 20111031
  Transmission Date: 20120403
  Serious: Yes (Death, Hospitalization)
  Sender: FDA-Public Use
  Company Number: MX-SANOFI-AVENTIS-2011SA071823

PATIENT
  Age: 66 Year
  Sex: Female

DRUGS (3)
  1. AMLODIPINE [Concomitant]
     Route: 048
     Dates: end: 20110425
  2. LANTUS [Suspect]
     Indication: TYPE 2 DIABETES MELLITUS
     Route: 058
     Dates: start: 20100901, end: 20110425
  3. ENALAPRIL MALEATE [Concomitant]
     Route: 048
     Dates: end: 20110425

REACTIONS (3)
  - CEREBROVASCULAR ACCIDENT [None]
  - PYREXIA [None]
  - COMA [None]
